FAERS Safety Report 21437841 (Version 3)
Quarter: 2024Q4

REPORT INFORMATION
  Report Type: Spontaneous
  Country: US (occurrence: US)
  Receive Date: 20221011
  Receipt Date: 20241026
  Transmission Date: 20250114
  Serious: Yes (Hospitalization, Other)
  Sender: AUROBINDO
  Company Number: US-MLMSERVICE-20220921-3803999-1

PATIENT
  Age: 16 Year
  Sex: Male

DRUGS (6)
  1. OLANZAPINE [Suspect]
     Active Substance: OLANZAPINE
     Indication: Catatonia
     Dosage: UNK UNK, TWO TIMES A DAY (UP TO 2.5 MG)
     Route: 065
  2. LORAZEPAM [Suspect]
     Active Substance: LORAZEPAM
     Indication: Catatonia
     Dosage: 2 MILLIGRAM, 3 TIMES A DAY
     Route: 042
  3. ARIPIPRAZOLE [Suspect]
     Active Substance: ARIPIPRAZOLE
     Indication: Catatonia
     Dosage: 5 MILLIGRAM, DAILY
     Route: 065
  4. ARIPIPRAZOLE [Suspect]
     Active Substance: ARIPIPRAZOLE
     Indication: Depression
  5. HALOPERIDOL [Suspect]
     Active Substance: HALOPERIDOL
     Indication: Catatonia
     Dosage: 20 MILLIGRAM, DAILY
     Route: 065
  6. RISPERIDONE [Suspect]
     Active Substance: RISPERIDONE
     Indication: Catatonia
     Dosage: 6 MILLIGRAM, DAILY
     Route: 065

REACTIONS (4)
  - Urinary incontinence [Unknown]
  - Catatonia [Recovered/Resolved]
  - Condition aggravated [Recovered/Resolved]
  - Drug ineffective [Unknown]
